FAERS Safety Report 18734616 (Version 1)
Quarter: 2021Q1

REPORT INFORMATION
  Report Type: Spontaneous
  Country: JP (occurrence: JP)
  Receive Date: 20210113
  Receipt Date: 20210113
  Transmission Date: 20210419
  Serious: Yes (Hospitalization)
  Sender: FDA-Public Use
  Company Number: NVSC2021JP005358

PATIENT
  Age: 80 Year
  Sex: Female

DRUGS (1)
  1. RECLAST [Suspect]
     Active Substance: ZOLEDRONIC ACID
     Indication: PRODUCT USED FOR UNKNOWN INDICATION
     Dosage: 5 MG, ONCE/SINGLE (ONCE YEARLY)
     Route: 041
     Dates: start: 20200326

REACTIONS (3)
  - Limb injury [Unknown]
  - Skeletal injury [Unknown]
  - Procedural pain [Unknown]

NARRATIVE: CASE EVENT DATE: 202012
